FAERS Safety Report 8851245 (Version 1)
Quarter: 2012Q4

REPORT INFORMATION
  Report Type: 
  Country: US (occurrence: US)
  Receive Date: 20121019
  Receipt Date: 20121019
  Transmission Date: 20130627
  Serious: Yes (Other)
  Sender: FDA-Public Use
  Company Number: US-TEVA-365148USA

PATIENT
  Age: 40 None
  Sex: Female
  Weight: 81.72 kg

DRUGS (8)
  1. COPAXONE [Suspect]
     Indication: MULTIPLE SCLEROSIS
     Dosage: 20 Milligram Daily;
     Route: 058
     Dates: start: 20120806
  2. PEPCID [Concomitant]
     Indication: ULCER
     Dosage: 40 Milligram Daily;
     Route: 048
  3. CELEXA [Concomitant]
     Dosage: 20 Milligram Daily;
     Route: 048
  4. MICROZIDE [Concomitant]
     Dosage: 12.5 Milligram Daily;
     Route: 048
  5. ADDERALL XR [Concomitant]
     Dosage: 15 Milligram Daily;
     Route: 048
  6. LORTAB [Concomitant]
     Indication: PAIN
     Dosage: 7.5/500 mg; daily dose varies
     Route: 048
  7. IBUPROFEN [Concomitant]
     Indication: PROPHYLAXIS
     Dosage: 400 Milligram Daily;
     Route: 048
     Dates: start: 201208
  8. LORATADINE [Concomitant]
     Indication: PROPHYLAXIS
     Dosage: 10 Milligram Daily;
     Route: 048
     Dates: start: 201208

REACTIONS (7)
  - Pharyngeal oedema [Recovered/Resolved]
  - Immediate post-injection reaction [Recovered/Resolved]
  - Injection site swelling [Not Recovered/Not Resolved]
  - Injection site warmth [Not Recovered/Not Resolved]
  - Injection site erythema [Not Recovered/Not Resolved]
  - Injection site pruritus [Not Recovered/Not Resolved]
  - Ulcer [Not Recovered/Not Resolved]
